FAERS Safety Report 15397031 (Version 2)
Quarter: 2020Q3

REPORT INFORMATION
  Report Type: Spontaneous
  Country: US (occurrence: US)
  Receive Date: 20180918
  Receipt Date: 20200904
  Transmission Date: 20201102
  Serious: No
  Sender: FDA-Public Use
  Company Number: US-SA-2018SA259999

PATIENT

DRUGS (17)
  1. CLOPIDOGREL [Concomitant]
     Active Substance: CLOPIDOGREL BISULFATE
  2. FENOFIBRATE. [Concomitant]
     Active Substance: FENOFIBRATE
  3. GLYBURIDE/METFORMIN [Concomitant]
     Active Substance: GLYBURIDE\METFORMIN
  4. CLONAZEPAM. [Concomitant]
     Active Substance: CLONAZEPAM
  5. NAPROXEN. [Concomitant]
     Active Substance: NAPROXEN
  6. DALFAMPRIDINE. [Concomitant]
     Active Substance: DALFAMPRIDINE
  7. GABAPENTIN. [Concomitant]
     Active Substance: GABAPENTIN
  8. AFLURIA NOS [Concomitant]
     Active Substance: INFLUENZA VIRUS VACCINE TRIVALENT TYPE A+B AFLURIA
  9. ATENOLOL. [Concomitant]
     Active Substance: ATENOLOL
  10. LISINOPRIL. [Concomitant]
     Active Substance: LISINOPRIL
  11. PREVNAR 13 [Concomitant]
     Active Substance: PNEUMOCOCCAL 13-VALENT CONJUGATE VACCINE
  12. TAMSULOSIN HYDROCHLORIDE. [Concomitant]
     Active Substance: TAMSULOSIN HYDROCHLORIDE
  13. PRAVASTATIN SODIUM. [Concomitant]
     Active Substance: PRAVASTATIN SODIUM
  14. FINASTERIDE. [Concomitant]
     Active Substance: FINASTERIDE
  15. AUBAGIO [Suspect]
     Active Substance: TERIFLUNOMIDE
     Indication: PRODUCT USED FOR UNKNOWN INDICATION
     Dosage: 14 MG, QD
     Route: 048
     Dates: start: 20180315
  16. TEMAZEPAM. [Concomitant]
     Active Substance: TEMAZEPAM
  17. AMLODIPINE BESYLATE. [Concomitant]
     Active Substance: AMLODIPINE BESYLATE

REACTIONS (2)
  - Chills [Unknown]
  - Tremor [Unknown]
